FAERS Safety Report 9413256 (Version 1)
Quarter: 2013Q2

REPORT INFORMATION
  Report Type: Spontaneous
  Country: US (occurrence: None)
  Receive Date: 20130613
  Receipt Date: 20130613
  Transmission Date: 20140414
  Serious: Yes (Life-Threatening, Hospitalization, Other)
  Sender: FDA-Public Use
  Company Number: AUR-APL-2013-03573

PATIENT
  Age: 79 Year
  Sex: Male

DRUGS (11)
  1. SIMVASTATIN (SIMVASTATIN) [Suspect]
     Indication: PRODUCT USED FOR UNKNOWN INDICATION
  2. ATORVASTATIN (ATORVASTATIN) [Suspect]
     Indication: PRODUCT USED FOR UNKNOWN INDICATION
     Dates: end: 20130416
  3. ASPIRIN (ACETYLSALICYLIC ACID) [Concomitant]
  4. DIGOXIN (DIGOXIN) [Concomitant]
  5. METOPROLOL (METOPROLOL) [Concomitant]
  6. OMEPRAZOLE (OMEPRAZOLE) [Concomitant]
  7. PADAXA (DABIGATRAN ETEXILATE MESILATE) [Concomitant]
  8. ZETIA (EZETIMIBE) [Concomitant]
  9. BENICAR (OLMESARTAN MEDOXOMIL) [Concomitant]
  10. AGGRENOX (ASASANTIN) [Concomitant]
  11. HYDROCHLOROTHIAZIDE (HYDROCHLOROTHIAZIDE) [Concomitant]

REACTIONS (41)
  - Diarrhoea [None]
  - Dehydration [None]
  - Renal failure acute [None]
  - Rectal haemorrhage [None]
  - Hypophagia [None]
  - Hypotension [None]
  - Atrial fibrillation [None]
  - Lower gastrointestinal haemorrhage [None]
  - Haemorrhoidal haemorrhage [None]
  - Haematochezia [None]
  - Hypokalaemia [None]
  - Blood glucose increased [None]
  - Blood calcium decreased [None]
  - Lipase increased [None]
  - Metabolic acidosis [None]
  - Pallor [None]
  - Asthenia [None]
  - Weight decreased [None]
  - Palpitations [None]
  - Hyperhidrosis [None]
  - Feeling cold [None]
  - Umbilical hernia [None]
  - Gastrointestinal sounds abnormal [None]
  - White blood cell count increased [None]
  - Gastroenteritis [None]
  - Acute prerenal failure [None]
  - Depressed level of consciousness [None]
  - Lethargy [None]
  - Haemoconcentration [None]
  - Coagulopathy [None]
  - Anaemia [None]
  - Neuroendocrine tumour [None]
  - Electrolyte imbalance [None]
  - Cachexia [None]
  - Coronary artery disease [None]
  - Dialysis [None]
  - Colitis [None]
  - Ileitis [None]
  - Campylobacter test positive [None]
  - Decreased appetite [None]
  - Faeces discoloured [None]
